FAERS Safety Report 12647177 (Version 1)
Quarter: 2016Q3

REPORT INFORMATION
  Report Type: Report from Study
  Country: US (occurrence: US)
  Receive Date: 20160812
  Receipt Date: 20160812
  Transmission Date: 20161109
  Serious: No
  Sender: FDA-Public Use
  Company Number: US-AMGEN-USASL2016103311

PATIENT
  Age: 68 Year
  Sex: Female

DRUGS (1)
  1. ENBREL [Suspect]
     Active Substance: ETANERCEPT
     Indication: PRODUCT USED FOR UNKNOWN INDICATION
     Dosage: UNK
     Route: 065

REACTIONS (8)
  - Gait disturbance [Unknown]
  - Skin discolouration [Unknown]
  - Peripheral swelling [Unknown]
  - Joint swelling [Unknown]
  - Rash macular [Unknown]
  - Asthenia [Unknown]
  - Arthralgia [Unknown]
  - Butterfly rash [Unknown]
